FAERS Safety Report 8221155-7 (Version None)
Quarter: 2012Q1

REPORT INFORMATION
  Report Type: 
  Country: None (occurrence: None)
  Receive Date: 20120320
  Receipt Date: 20120314
  Transmission Date: 20120608
  Serious: Yes (Other)
  Sender: FDA-Public Use
  Company Number: US-PFIZER INC-2005124753

PATIENT
  Sex: Male
  Weight: 83.9 kg

DRUGS (9)
  1. DILANTIN [Suspect]
     Indication: ANXIETY DISORDER
     Dosage: 50 MG, DAILY
     Route: 048
  2. LOVAZA [Concomitant]
     Dosage: UNK, A COUPLE PER DAY
     Route: 065
  3. DILANTIN [Suspect]
     Indication: CONVULSION
     Dosage: 50 MG, (1 TABLET IN AT 0600, 1 TABLET AT 1000, 1 TABLET AT 1800, AND 3 TABLETS AT BEDTIME
     Route: 048
  4. SAW PALMETTO [Suspect]
     Indication: ILL-DEFINED DISORDER
     Dosage: UNK
     Route: 048
     Dates: start: 20050101
  5. MULTIPLE VITAMINS [Concomitant]
     Dosage: UNK
     Route: 065
  6. SELENIUM/TOCOPHEROL [Concomitant]
     Dosage: 400 IU/50 MCG, 2X/DAY
  7. ZINC [Concomitant]
     Dosage: 15 MG, DAILY
  8. CALCIUM [Concomitant]
     Dosage: 120 MG, DAILY
  9. LECITHIN [Concomitant]
     Dosage: UNK, 2X/DAY

REACTIONS (16)
  - CONVULSION [None]
  - SPINAL DISORDER [None]
  - VISUAL IMPAIRMENT [None]
  - AMNESIA [None]
  - SOMNOLENCE [None]
  - HEART RATE DECREASED [None]
  - DIZZINESS [None]
  - GRAND MAL CONVULSION [None]
  - ANTICONVULSANT DRUG LEVEL DECREASED [None]
  - ASTHENIA [None]
  - ANGER [None]
  - HEART RATE INCREASED [None]
  - ANTICONVULSANT DRUG LEVEL ABOVE THERAPEUTIC [None]
  - FEELING ABNORMAL [None]
  - DRUG INEFFECTIVE [None]
  - PARAESTHESIA [None]
